FAERS Safety Report 6539466-X (Version None)
Quarter: 2010Q1

REPORT INFORMATION
  Report Type: 
  Country: None (occurrence: None)
  Receive Date: 20100115
  Receipt Date: 20100111
  Transmission Date: 20100710
  Serious: Yes (Other)
  Sender: FDA-Public Use
  Company Number: A0802624A

PATIENT
  Age: 42 Year
  Sex: Female
  Weight: 89.5 kg

DRUGS (1)
  1. AVANDIA [Suspect]
     Indication: DIABETES MELLITUS
     Dosage: 4MG PER DAY
     Route: 048
     Dates: start: 20080606, end: 20080804

REACTIONS (2)
  - FATIGUE [None]
  - SILENT MYOCARDIAL INFARCTION [None]
